FAERS Safety Report 10342800 (Version 1)
Quarter: 2014Q3

REPORT INFORMATION
  Report Type: Spontaneous
  Country: FR (occurrence: FR)
  Receive Date: 20140725
  Receipt Date: 20140725
  Transmission Date: 20150326
  Serious: Yes (Hospitalization)
  Sender: FDA-Public Use
  Company Number: FR-PFIZER INC-2014207422

PATIENT
  Age: 58 Year
  Sex: Male

DRUGS (11)
  1. JANUMET [Concomitant]
     Active Substance: METFORMIN HYDROCHLORIDE\SITAGLIPTIN PHOSPHATE
     Dosage: UNK
  2. LAMALINE [Suspect]
     Active Substance: ACETAMINOPHEN\CAFFEINE\OPIUM
     Dosage: UNK
     Route: 048
     Dates: start: 20140616, end: 20140617
  3. NOVONORM [Concomitant]
     Active Substance: REPAGLINIDE
     Dosage: UNK
  4. RAMIPRIL. [Concomitant]
     Active Substance: RAMIPRIL
     Dosage: UNK
  5. CORDARONE [Suspect]
     Active Substance: AMIODARONE HYDROCHLORIDE
     Dosage: 5 DF, DAILY
     Route: 048
     Dates: start: 20140613, end: 20140614
  6. LAMALINE [Suspect]
     Active Substance: ACETAMINOPHEN\CAFFEINE\OPIUM
     Dosage: UNK
     Route: 048
     Dates: start: 20140607, end: 20140612
  7. METFORMIN [Concomitant]
     Active Substance: METFORMIN HYDROCHLORIDE
     Dosage: UNK
  8. CORDARONE [Suspect]
     Active Substance: AMIODARONE HYDROCHLORIDE
     Dosage: 3 DF, DAILY
     Route: 048
     Dates: start: 20140611, end: 20140612
  9. CORDARONE [Suspect]
     Active Substance: AMIODARONE HYDROCHLORIDE
     Dosage: 3 DF, DAILY
     Route: 048
     Dates: start: 20140615, end: 20140616
  10. CORDARONE [Suspect]
     Active Substance: AMIODARONE HYDROCHLORIDE
     Dosage: 1 DF, DAILY
     Route: 048
     Dates: start: 20140617, end: 20140617
  11. KARDEGIC [Concomitant]
     Active Substance: ASPIRIN LYSINE
     Dosage: UNK

REACTIONS (5)
  - Blood urea increased [Unknown]
  - Hepatocellular injury [Recovering/Resolving]
  - Hepatic failure [Not Recovered/Not Resolved]
  - Hepatitis [Unknown]
  - Blood creatinine decreased [Unknown]

NARRATIVE: CASE EVENT DATE: 20140617
